FAERS Safety Report 9378084 (Version 1)
Quarter: 2013Q3

REPORT INFORMATION
  Report Type: Spontaneous
  Country: FR (occurrence: FR)
  Receive Date: 20130701
  Receipt Date: 20130701
  Transmission Date: 20140515
  Serious: Yes (Other)
  Sender: FDA-Public Use
  Company Number: FR-TEVA-416196ISR

PATIENT
  Sex: Female

DRUGS (4)
  1. FUROSEMIDE TEVA [Suspect]
     Indication: RIGHT VENTRICULAR FAILURE
     Dosage: 250 MILLIGRAM DAILY;
     Route: 048
     Dates: start: 201302, end: 201305
  2. COUMADINE 5MG [Concomitant]
     Dosage: 5 MILLIGRAM DAILY; SCORED TABLET
     Route: 048
     Dates: start: 201101
  3. ADCIRCA [Concomitant]
     Dosage: 2 DOSAGE FORMS DAILY;
     Route: 048
  4. TRACLEER 125MG [Concomitant]
     Dosage: 2 DOSAGE FORMS DAILY;

REACTIONS (3)
  - Asthenia [Recovered/Resolved]
  - Oliguria [Recovered/Resolved]
  - Dyspnoea [Unknown]
